FAERS Safety Report 6473425-0 (Version None)
Quarter: 2009Q4

REPORT INFORMATION
  Report Type: 
  Country: None (occurrence: None)
  Receive Date: 20091204
  Receipt Date: 20090120
  Transmission Date: 20100525
  Serious: No
  Sender: FDA-Public Use
  Company Number: US-ELI_LILLY_AND_COMPANY-US200812004949

PATIENT
  Sex: Female

DRUGS (11)
  1. CYMBALTA [Suspect]
     Dosage: 30 MG, UNK
     Dates: start: 20081211, end: 20081212
  2. ALEVE [Concomitant]
  3. ALBUTEROL [Concomitant]
  4. COMBIVENT [Concomitant]
  5. PHENERGAN HCL [Concomitant]
  6. NASONEX [Concomitant]
  7. XYZAL [Concomitant]
  8. SYNTHROID [Concomitant]
  9. METFORMIN HCL [Concomitant]
  10. VALIUM [Concomitant]
  11. NEURONTIN [Concomitant]

REACTIONS (3)
  - BURNING SENSATION [None]
  - HEADACHE [None]
  - MENTAL STATUS CHANGES [None]
